FAERS Safety Report 7638869-X (Version None)
Quarter: 2011Q3

REPORT INFORMATION
  Report Type: 
  Country: None (occurrence: None)
  Receive Date: 20110727
  Receipt Date: 20110713
  Transmission Date: 20111222
  Serious: Yes (Hospitalization, Other)
  Sender: FDA-Public Use
  Company Number: GB-MYLANLABS-2011S1015001

PATIENT
  Age: 26 Year
  Sex: Female

DRUGS (5)
  1. PREDNISOLONE [Suspect]
     Indication: CROHN'S DISEASE
     Dosage: 5 MG/DAY
     Route: 065
  2. MESALAMINE [Concomitant]
     Indication: CROHN'S DISEASE
     Dosage: 1.2 G/DAY
     Route: 065
  3. AZATHIOPRINE [Suspect]
     Indication: CROHN'S DISEASE
     Dosage: 75 MG/DAY
     Route: 065
  4. ALENDRONIC ACID [Concomitant]
     Indication: OSTEOPOROSIS
     Route: 065
  5. CALCIUM D3                         /01483701/ [Concomitant]
     Indication: OSTEOPOROSIS
     Route: 065

REACTIONS (4)
  - MATERNAL EXPOSURE DURING PREGNANCY [None]
  - ABORTION MISSED [None]
  - CLOSTRIDIUM TEST [None]
  - CYTOMEGALOVIRUS COLITIS [None]
